FAERS Safety Report 7711131-2 (Version None)
Quarter: 2011Q3

REPORT INFORMATION
  Report Type: 
  Country: None (occurrence: None)
  Receive Date: 20110826
  Receipt Date: 20110816
  Transmission Date: 20111222
  Serious: No
  Sender: FDA-Public Use
  Company Number: US-BIOGENIDEC-2011BI023166

PATIENT
  Sex: Female

DRUGS (1)
  1. TYSABRI [Suspect]
     Indication: MULTIPLE SCLEROSIS
     Route: 042
     Dates: start: 20110331, end: 20110401

REACTIONS (5)
  - OSTEOMYELITIS [None]
  - SWEAT GLAND INFECTION [None]
  - LOCALISED INFECTION [None]
  - COORDINATION ABNORMAL [None]
  - BLOOD COUNT ABNORMAL [None]
